FAERS Safety Report 4710140-5 (Version None)
Quarter: 2005Q2

REPORT INFORMATION
  Report Type: 
  Country: None (occurrence: None)
  Receive Date: 20050629
  Receipt Date: 20050308
  Transmission Date: 20051028
  Serious: No
  Sender: FDA-Public Use
  Company Number: 05P-163-0293242-00

PATIENT
  Age: 82 Year
  Sex: Female

DRUGS (8)
  1. HUMIRA [Suspect]
     Indication: RHEUMATOID ARTHRITIS
     Dosage: 40 MG, 1 IN 2 WK, SUBCUTANEOUS
     Route: 058
     Dates: start: 20040101
  2. LEVOTHYROXINE SODIUM [Concomitant]
  3. RALOXIFENE HCL [Concomitant]
  4. MULTI-VITAMINS [Concomitant]
  5. CALCIUM GLUCONATE [Concomitant]
  6. FOLIC ACID [Concomitant]
  7. ESOMEPRAZOLE [Concomitant]
  8. METOCLOPRAMIDE [Concomitant]

REACTIONS (1)
  - INJECTION SITE ERYTHEMA [None]
